FAERS Safety Report 6251105-4 (Version None)
Quarter: 2009Q2

REPORT INFORMATION
  Report Type: 
  Country: None (occurrence: None)
  Receive Date: 20090626
  Receipt Date: 20090612
  Transmission Date: 20091009
  Serious: Yes (Other)
  Sender: FDA-Public Use
  Company Number: 305381

PATIENT
  Sex: Female

DRUGS (2)
  1. METHOTREXATE [Suspect]
     Dosage: SUBCUTANEOUS
     Route: 058
  2. ENBREL [Suspect]

REACTIONS (3)
  - ANAPHYLACTIC REACTION [None]
  - PRODUCT SUBSTITUTION ISSUE [None]
  - REACTION TO DRUG EXCIPIENTS [None]
